FAERS Safety Report 17620414 (Version 4)
Quarter: 2020Q2

REPORT INFORMATION
  Report Type: Report from Study
  Country: CN (occurrence: CN)
  Receive Date: 20200403
  Receipt Date: 20200611
  Transmission Date: 20200713
  Serious: Yes (Hospitalization)
  Sender: FDA-Public Use
  Company Number: CN-ROCHE-2563632

PATIENT
  Age: 75 Year
  Sex: Female
  Weight: 69 kg

DRUGS (36)
  1. GINKGO BILOBA LEAF [Concomitant]
     Active Substance: GINKGO
     Route: 065
     Dates: start: 2008
  2. LEVAMLODIPINE MALEATE. [Concomitant]
     Active Substance: LEVAMLODIPINE MALEATE
     Route: 065
     Dates: start: 2008
  3. ANGELICA ARCHANGELICA [Concomitant]
     Indication: LEUKOPENIA
     Route: 065
     Dates: start: 20190308
  4. LEVOTHYROXINE SODIUM. [Concomitant]
     Active Substance: LEVOTHYROXINE SODIUM
     Indication: HYPOTHYROIDISM
     Route: 065
     Dates: start: 20191001
  5. REDUCED GLUTATHIONE SODIUM [Concomitant]
     Active Substance: GLUTATHIONE
     Route: 065
     Dates: start: 20200115, end: 20200115
  6. LANSOPRAZOLE. [Concomitant]
     Active Substance: LANSOPRAZOLE
     Indication: PROPHYLAXIS
     Route: 065
     Dates: start: 20191113, end: 20191113
  7. POTASSIUM CHLORIDE. [Concomitant]
     Active Substance: POTASSIUM CHLORIDE
     Indication: PROPHYLAXIS
     Route: 065
     Dates: start: 20191113, end: 20191113
  8. PLACEBO [Suspect]
     Active Substance: UNSPECIFIED INGREDIENT
     Indication: OVARIAN CANCER
     Dosage: ON 04/FEB/2020, THE PATIENT RECEIVED DOSE OF ATEZOLIZUMAB MG PRIOR TO SAE.
     Route: 042
     Dates: start: 20181120
  9. BEVACIZUMAB. [Suspect]
     Active Substance: BEVACIZUMAB
     Indication: OVARIAN CANCER
     Dosage: ON 04/FEB/2020, THE PATIENT RECEIVED DOSE 990 MG PRIOR TO SAE.
     Route: 042
     Dates: start: 20181211
  10. SALVIA MILTIORRHIZA [Concomitant]
     Active Substance: HERBALS
     Indication: LEUKOPENIA
     Route: 065
     Dates: start: 20190308
  11. POTASSIUM CHLORIDE. [Concomitant]
     Active Substance: POTASSIUM CHLORIDE
     Route: 065
     Dates: start: 20191204, end: 20191204
  12. ZIZIPHUS JUJUBA [Concomitant]
     Indication: LEUKOPENIA
     Route: 065
     Dates: start: 20190308
  13. BUPLEURUM CHINENSE, ROOT [Concomitant]
     Route: 065
     Dates: start: 20190718
  14. BERBERINE HYDROCHLORIDE [Concomitant]
     Active Substance: BERBERINE
     Indication: DIARRHOEA
     Route: 065
     Dates: start: 20190803, end: 20200205
  15. REDUCED GLUTATHIONE SODIUM [Concomitant]
     Active Substance: GLUTATHIONE
     Route: 065
     Dates: start: 20191204, end: 20191204
  16. PACLITAXEL. [Suspect]
     Active Substance: PACLITAXEL
     Indication: OVARIAN CANCER
     Dosage: ON 06/MAR/2019, THE PATIENT RECEIVED MOST RECENT DOSE 300 MG PRIOR TO EVENT.
     Route: 042
     Dates: start: 20181120
  17. CARBOPLATIN. [Suspect]
     Active Substance: CARBOPLATIN
     Indication: OVARIAN CANCER
     Dosage: ON 06/MAR/2019, THE PATIENT RECEIVED MOST RECENT DOSE 590 MG PRIOR TO EVENT. ?DOSE TO ACHIEVE A TARG
     Route: 042
     Dates: start: 20181120
  18. EJIAO [Concomitant]
     Indication: LEUKOPENIA
  19. CALCIUM CARBONATE/VITAMIN D3 [Concomitant]
     Active Substance: CALCIUM CARBONATE\CHOLECALCIFEROL
     Route: 065
     Dates: start: 20190329
  20. VIGNA RADIATA [Concomitant]
     Route: 065
     Dates: start: 20190718
  21. REDUCED GLUTATHIONE SODIUM [Concomitant]
     Active Substance: GLUTATHIONE
     Route: 065
     Dates: start: 20191225, end: 20191225
  22. POTASSIUM CHLORIDE. [Concomitant]
     Active Substance: POTASSIUM CHLORIDE
     Route: 065
     Dates: start: 20200115, end: 20200115
  23. OMEPRAZOLE SODIUM [Concomitant]
     Active Substance: OMEPRAZOLE SODIUM
     Indication: PROPHYLAXIS
     Route: 065
     Dates: start: 20200115, end: 20200115
  24. ASTRAGALUS SPP. [Concomitant]
     Indication: LEUKOPENIA
     Route: 065
     Dates: start: 20190308
  25. LEUCOGEN [Concomitant]
     Active Substance: LEUCOGEN
     Indication: THROMBOCYTOPENIA
     Route: 065
     Dates: start: 20190510
  26. REDUCED GLUTATHIONE SODIUM [Concomitant]
     Active Substance: GLUTATHIONE
     Indication: PROPHYLAXIS
     Route: 065
     Dates: start: 20191113, end: 20191113
  27. REDUCED GLUTATHIONE SODIUM [Concomitant]
     Active Substance: GLUTATHIONE
     Route: 065
     Dates: start: 20200204, end: 20200204
  28. BAICALIN;BUFFALO HORN;CHOLIC ACID;CONCHA MARGARITIFERA;GARDENIA JASMIN [Concomitant]
     Indication: NASAL CONGESTION
     Route: 065
     Dates: start: 20191221, end: 20191226
  29. KU SHEN [Concomitant]
     Indication: LEUKOPENIA
     Route: 065
     Dates: start: 20190308
  30. ISATIS TINCTORIA ROOT. [Concomitant]
     Active Substance: ISATIS TINCTORIA ROOT
     Route: 065
     Dates: start: 20190718
  31. LANSOPRAZOLE. [Concomitant]
     Active Substance: LANSOPRAZOLE
     Route: 065
     Dates: start: 20191204, end: 20191204
  32. POTASSIUM CHLORIDE. [Concomitant]
     Active Substance: POTASSIUM CHLORIDE
     Route: 065
     Dates: start: 20200204, end: 20200204
  33. LANSOPRAZOLE. [Concomitant]
     Active Substance: LANSOPRAZOLE
     Route: 065
     Dates: start: 20191225, end: 20191225
  34. POTASSIUM CHLORIDE. [Concomitant]
     Active Substance: POTASSIUM CHLORIDE
     Route: 065
     Dates: start: 20191225, end: 20191225
  35. AMIFOSTINE. [Concomitant]
     Active Substance: AMIFOSTINE
     Indication: PROPHYLAXIS
     Route: 065
     Dates: start: 20191113, end: 20191113
  36. OMEPRAZOLE SODIUM [Concomitant]
     Active Substance: OMEPRAZOLE SODIUM
     Route: 065
     Dates: start: 20200204, end: 20200204

REACTIONS (1)
  - Immune-mediated nephritis [Not Recovered/Not Resolved]

NARRATIVE: CASE EVENT DATE: 20191203
